FAERS Safety Report 6209686-2 (Version None)
Quarter: 2009Q2

REPORT INFORMATION
  Report Type: 
  Country: None (occurrence: None)
  Receive Date: 20090601
  Receipt Date: 20090522
  Transmission Date: 20091009
  Serious: Yes (Other)
  Sender: FDA-Public Use
  Company Number: US-AMGEN-QUU348210

PATIENT
  Sex: Female

DRUGS (5)
  1. NEULASTA [Suspect]
     Indication: CHEMOTHERAPY
     Route: 065
     Dates: start: 20090415
  2. LOVASTATIN [Concomitant]
  3. CYTOXAN [Concomitant]
     Dates: start: 20090401
  4. TAXOTERE [Concomitant]
     Dates: start: 20090401, end: 20090501
  5. ABRAXANE [Concomitant]
     Dates: start: 20090501

REACTIONS (4)
  - HEART RATE INCREASED [None]
  - HYPERSENSITIVITY [None]
  - PRURITUS GENERALISED [None]
  - RASH [None]
